FAERS Safety Report 6761505-1 (Version None)
Quarter: 2010Q2

REPORT INFORMATION
  Report Type: 
  Country: None (occurrence: None)
  Receive Date: 20100607
  Receipt Date: 20100527
  Transmission Date: 20101027
  Serious: Yes (Hospitalization)
  Sender: FDA-Public Use
  Company Number: CIP10001184

PATIENT
  Sex: Female

DRUGS (1)
  1. DIDRONEL [Suspect]
     Dosage: 400 MG, ON 14 DAYS EACH MONTH, ORAL
     Route: 048

REACTIONS (1)
  - VENOUS OCCLUSION [None]
